FAERS Safety Report 5367620-1 (Version None)
Quarter: 2007Q2

REPORT INFORMATION
  Report Type: 
  Country: None (occurrence: None)
  Receive Date: 20070620
  Receipt Date: 20070620
  Transmission Date: 20071010
  Serious: Yes (Hospitalization)
  Sender: FDA-Public Use
  Company Number: None

PATIENT
  Sex: Male

DRUGS (1)
  1. GMCSF [Suspect]
     Indication: PROSTATE CANCER
     Dosage: 500MG QD X14 DAYS SQ
     Route: 058
     Dates: start: 20070613, end: 20070618

REACTIONS (1)
  - ATRIAL FIBRILLATION [None]
